FAERS Safety Report 9686329 (Version 2)
Quarter: 2013Q4

REPORT INFORMATION
  Report Type: Spontaneous
  Country: GB (occurrence: GB)
  Receive Date: 20131113
  Receipt Date: 20131113
  Transmission Date: 20140711
  Serious: Yes (Hospitalization)
  Sender: FDA-Public Use
  Company Number: GB-JNJFOC-20130914921

PATIENT
  Sex: Male

DRUGS (3)
  1. SIMPONI [Suspect]
     Indication: PRODUCT USED FOR UNKNOWN INDICATION
     Route: 058
  2. SIMPONI [Suspect]
     Indication: PRODUCT USED FOR UNKNOWN INDICATION
     Route: 058
     Dates: start: 20130823
  3. METHOTREXATE [Concomitant]
     Route: 058

REACTIONS (2)
  - Investigation [Unknown]
  - Lower respiratory tract infection [Recovered/Resolved]
